FAERS Safety Report 23457142 (Version 10)
Quarter: 2025Q1

REPORT INFORMATION
  Report Type: Report from Study
  Country: US (occurrence: US)
  Receive Date: 20240130
  Receipt Date: 20250304
  Transmission Date: 20250409
  Serious: Yes (Hospitalization, Other)
  Sender: ABBVIE
  Company Number: US-ABBVIE-5605339

PATIENT
  Age: 76 Year
  Sex: Female
  Weight: 73 kg

DRUGS (9)
  1. HUMIRA [Suspect]
     Active Substance: ADALIMUMAB
     Indication: Crohn^s disease
     Dosage: FORM STRENGTH: 40 MILLIGRAM?CITRATE FREE?LAST ADMIN DATE-2023
     Route: 058
     Dates: start: 20240416
  2. HUMIRA [Suspect]
     Active Substance: ADALIMUMAB
     Dosage: FORM STRENGTH: 40 MILLIGRAM?CITRATE FREE
     Route: 058
     Dates: start: 20240416
  3. HUMIRA [Suspect]
     Active Substance: ADALIMUMAB
     Dosage: FORM STRENGTH: 40 MILLIGRAM?CITRATE FREE
     Route: 058
     Dates: start: 20201218
  4. HUMIRA [Suspect]
     Active Substance: ADALIMUMAB
     Dosage: FORM STRENGTH: 40 MILLIGRAM?CITRATE FREE?LAST ADMIN DATE-2023
     Route: 058
     Dates: start: 20230926
  5. HUMIRA [Suspect]
     Active Substance: ADALIMUMAB
     Dosage: FORM STRENGTH: 40 MILLIGRAM?CITRATE FREE
     Route: 058
     Dates: start: 20231207
  6. HUMIRA [Suspect]
     Active Substance: ADALIMUMAB
     Route: 058
  7. VITAMIN D [Concomitant]
     Active Substance: VITAMIN D NOS
     Indication: Product used for unknown indication
     Dosage: 1000 UNIT
     Route: 048
  8. METOPROLOL [Concomitant]
     Active Substance: METOPROLOL
     Indication: Product used for unknown indication
     Route: 048
     Dates: start: 20230530
  9. CALCIUM [Concomitant]
     Active Substance: CALCIUM
     Indication: Product used for unknown indication
     Route: 048
     Dates: start: 2020

REACTIONS (24)
  - Mitral valve stenosis [Unknown]
  - Angiopathy [Unknown]
  - Arthralgia [Not Recovered/Not Resolved]
  - Back pain [Recovered/Resolved]
  - Blood sodium decreased [Unknown]
  - Sepsis [Recovered/Resolved]
  - Back pain [Recovering/Resolving]
  - Spinal compression fracture [Unknown]
  - Cataract [Unknown]
  - Gastrointestinal disorder [Unknown]
  - Osteoarthritis [Unknown]
  - Dysstasia [Unknown]
  - Back pain [Recovered/Resolved with Sequelae]
  - Dyspnoea [Unknown]
  - Arthralgia [Unknown]
  - Chest discomfort [Unknown]
  - Sepsis [Recovered/Resolved]
  - Heart valve incompetence [Unknown]
  - Mitral valve calcification [Unknown]
  - Aortic valve disease [Unknown]
  - Aortic valve calcification [Unknown]
  - Aortic valve stenosis [Unknown]
  - Mitral valve disease [Unknown]
  - Arthritis [Unknown]

NARRATIVE: CASE EVENT DATE: 20230919
